FAERS Safety Report 24455705 (Version 2)
Quarter: 2024Q4

REPORT INFORMATION
  Report Type: Report from Study
  Country: IT (occurrence: IT)
  Receive Date: 20241017
  Receipt Date: 20241018
  Transmission Date: 20250114
  Serious: No
  Sender: ROCHE
  Company Number: IT-ROCHE-3483095

PATIENT
  Age: 56 Year
  Sex: Female

DRUGS (3)
  1. RITUXIMAB [Interacting]
     Active Substance: RITUXIMAB
     Indication: Splenic marginal zone lymphoma
     Route: 065
  2. BENDAMUSTINE [Interacting]
     Active Substance: BENDAMUSTINE
     Indication: Splenic marginal zone lymphoma
     Route: 065
  3. ELASOMERAN [Interacting]
     Active Substance: ELASOMERAN
     Indication: COVID-19 prophylaxis
     Route: 065

REACTIONS (4)
  - COVID-19 [Unknown]
  - Humoral immune defect [Unknown]
  - Vaccine interaction [Unknown]
  - Off label use [Unknown]
